FAERS Safety Report 22600132 (Version 1)
Quarter: 2023Q2

REPORT INFORMATION
  Report Type: Spontaneous
  Country: CN (occurrence: CN)
  Receive Date: 20230614
  Receipt Date: 20230614
  Transmission Date: 20230722
  Serious: Yes (Hospitalization)
  Sender: FDA-Public Use
  Company Number: CN-002147023-NVSC2023CN133889

PATIENT
  Age: 45 Year
  Sex: Female

DRUGS (4)
  1. OXCARBAZEPINE [Suspect]
     Active Substance: OXCARBAZEPINE
     Indication: Mood swings
     Dosage: 0.15 G, BID (0.3 G, QD)
     Route: 048
     Dates: start: 20230530, end: 20230606
  2. RISPERIDONE [Concomitant]
     Active Substance: RISPERIDONE
     Indication: Mood swings
     Dosage: 3 MG, QD
     Route: 048
     Dates: start: 20230410, end: 20230603
  3. RISPERIDONE [Concomitant]
     Active Substance: RISPERIDONE
     Dosage: 2 MG, QD
     Route: 065
  4. LITHIUM CARBONATE [Concomitant]
     Active Substance: LITHIUM CARBONATE
     Indication: Mood swings
     Dosage: 0.30 G, BID
     Route: 048
     Dates: start: 20230410, end: 20230606

REACTIONS (3)
  - Gait disturbance [Recovering/Resolving]
  - Ataxia [Recovering/Resolving]
  - Mental fatigue [Unknown]

NARRATIVE: CASE EVENT DATE: 20230603
